FAERS Safety Report 8854335 (Version 2)
Quarter: 2013Q1

REPORT INFORMATION
  Report Type: Spontaneous
  Country: US (occurrence: None)
  Receive Date: 20121019
  Receipt Date: 20130219
  Transmission Date: 20140127
  Serious: Yes (Hospitalization)
  Sender: FDA-Public Use
  Company Number: ALK-2012-000959

PATIENT
  Age: 52 Year
  Sex: Male

DRUGS (1)
  1. VIVITROL [Suspect]
     Indication: PRODUCT USED FOR UNKNOWN INDICATION
     Dosage: 380 MG, QMO, INTRAMUSCULAR
     Route: 030
     Dates: start: 201003

REACTIONS (3)
  - Pericardial effusion [None]
  - Dyspnoea [None]
  - Eosinophil count increased [None]
